FAERS Safety Report 9748906 (Version 2)
Quarter: 2013Q4

REPORT INFORMATION
  Report Type: Spontaneous
  Country: US (occurrence: US)
  Receive Date: 20131212
  Receipt Date: 20131212
  Transmission Date: 20140711
  Serious: Yes (Other)
  Sender: FDA-Public Use
  Company Number: US-INCYTE CORPORATION-2013IN001563

PATIENT
  Age: 68 Year
  Sex: Female
  Weight: 57.3 kg

DRUGS (19)
  1. JAKAFI [Suspect]
     Indication: MYELOFIBROSIS
     Dosage: 5 MG, BID
     Route: 048
     Dates: start: 20130701, end: 2013
  2. JAKAFI [Suspect]
     Dosage: 15 MG, BID
     Route: 048
     Dates: start: 2013, end: 2013
  3. JAKAFI [Suspect]
     Dosage: 10 MG, BID
     Route: 048
     Dates: start: 2013, end: 2013
  4. JAKAFI [Suspect]
     Dosage: 5 MG, QD
     Route: 048
     Dates: start: 20130725
  5. SYNTHROID [Concomitant]
     Dosage: 75 MCG, UNK
  6. LAMICTAL [Concomitant]
     Dosage: 250 MG, UNK
  7. MULTIVITAMIN [Concomitant]
  8. CALCIUM + VITAMIN D [Concomitant]
  9. VITAMIN C [Concomitant]
     Dosage: 1000 MG, UNK
  10. VALIUM [Concomitant]
     Dosage: 5 MG, UNK
  11. CYANOCOBALAMIN [Concomitant]
     Dosage: 250 MG, UNK
  12. DOCUSATE [Concomitant]
     Dosage: 100 MG, UNK
  13. PANTOPRAZOLE [Concomitant]
     Dosage: 40 MG, UNK
  14. OXYCONTIN [Concomitant]
     Dosage: 20 MG, UNK
  15. OXYCODONE ER [Concomitant]
     Dosage: 5-10 MG
  16. LIDOCAINE HYDROCHLORIDE [Concomitant]
     Route: 061
  17. MIRALAX [Concomitant]
  18. SENNA [Concomitant]
  19. BACTRIM DS [Concomitant]
     Dosage: 1 DF, UNK

REACTIONS (4)
  - Thrombocytopenia [Unknown]
  - Blood glucose decreased [Unknown]
  - Therapeutic response unexpected [Unknown]
  - Haemoglobin decreased [Unknown]
